FAERS Safety Report 10213873 (Version 1)
Quarter: 2014Q2

REPORT INFORMATION
  Report Type: Spontaneous
  Country: IT (occurrence: None)
  Receive Date: 20140529
  Receipt Date: 20140529
  Transmission Date: 20141212
  Serious: Yes (Other)
  Sender: FDA-Public Use
  Company Number: 2014AP003195

PATIENT
  Age: 11 Year
  Sex: Male

DRUGS (14)
  1. TOPIRAMATE [Suspect]
     Indication: PRODUCT USED FOR UNKNOWN INDICATION
  2. LEVETIRACETAM (LEVETIRACETAM) TABLET, 3000MG [Suspect]
     Indication: PRODUCT USED FOR UNKNOWN INDICATION
  3. VITAMIN B6 (PYRIDOXINE HYDROCHLORIDE) [Suspect]
     Indication: PARTIAL SEIZURES WITH SECONDARY GENERALISATION
  4. VITAMIN B6 (PYRIDOXINE HYDROCHLORIDE) [Suspect]
     Indication: STATUS EPILEPTICUS
  5. PHENOBARBITAL (PHENOBARBITAL) [Concomitant]
     Indication: PARTIAL SEIZURES WITH SECONDARY GENERALISATION
  6. PHENOBARBITAL (PHENOBARBITAL) [Concomitant]
     Indication: STATUS EPILEPTICUS
  7. BENZODIAZEPINE DERIVATIVES (BENZODIAZEPINE DERIVATIVES) [Suspect]
     Indication: PARTIAL SEIZURES WITH SECONDARY GENERALISATION
  8. BENZODIAZEPINE DERIVATIVES (BENZODIAZEPINE DERIVATIVES) [Suspect]
     Indication: STATUS EPILEPTICUS
  9. CARBAMAZEPINE (CARBAMAZEPINE) [Suspect]
     Indication: PARTIAL SEIZURES WITH SECONDARY GENERALISATION
  10. CARBAMAZEPINE (CARBAMAZEPINE) [Suspect]
     Indication: STATUS EPILEPTICUS
  11. VALPROATE [Suspect]
     Indication: PRODUCT USED FOR UNKNOWN INDICATION
  12. VIGABATRIN (VIGABATRIN) [Suspect]
     Indication: PRODUCT USED FOR UNKNOWN INDICATION
  13. CLOBAZAM (CLOBAZAM) [Suspect]
     Indication: PRODUCT USED FOR UNKNOWN INDICATION
  14. OXCARBAZEPINE (OXCARBAZEPINE) [Suspect]
     Indication: PRODUCT USED FOR UNKNOWN INDICATION

REACTIONS (2)
  - Drug ineffective [None]
  - Epilepsy [None]
